FAERS Safety Report 15018673 (Version 1)
Quarter: 2018Q2

REPORT INFORMATION
  Report Type: Spontaneous
  Country: US (occurrence: US)
  Receive Date: 20180616
  Receipt Date: 20180616
  Transmission Date: 20180711
  Serious: No
  Sender: FDA-Public Use
  Company Number: US-009507513-1806USA006122

PATIENT
  Age: 18 Year
  Sex: Female
  Weight: 59.5 kg

DRUGS (1)
  1. NEXPLANON [Suspect]
     Active Substance: ETONOGESTREL
     Dosage: 1 DF, LEFT ARM, SUBCUTANEOUS TISSUE OVER THE BICEPS REGION
     Route: 058
     Dates: start: 201401, end: 20180606

REACTIONS (3)
  - Device deployment issue [Recovered/Resolved]
  - Incorrect drug administration duration [Unknown]
  - Complication associated with device [Recovered/Resolved]

NARRATIVE: CASE EVENT DATE: 201401
